FAERS Safety Report 9789763 (Version 1)
Quarter: 2013Q4

REPORT INFORMATION
  Report Type: Spontaneous
  Country: US (occurrence: US)
  Receive Date: 20131231
  Receipt Date: 20131231
  Transmission Date: 20140711
  Serious: No
  Sender: FDA-Public Use
  Company Number: US-PFIZER INC-2013370291

PATIENT
  Age: 70 Year
  Sex: Female
  Weight: 70.75 kg

DRUGS (3)
  1. NORVASC [Suspect]
     Indication: HYPERTENSION
     Dosage: 5 MG, 1X/DAY
     Dates: start: 201311
  2. AVAPRO [Concomitant]
     Indication: HYPERTENSION
     Dosage: 300 MG, 1X/DAY
  3. TOPROL [Concomitant]
     Indication: PALPITATIONS
     Dosage: UNK, 1X/DAY

REACTIONS (3)
  - Weight increased [Not Recovered/Not Resolved]
  - Vitamin D decreased [Unknown]
  - Blood calcium abnormal [Unknown]
